FAERS Safety Report 4793747-9 (Version None)
Quarter: 2005Q4

REPORT INFORMATION
  Report Type: 
  Country: None (occurrence: None)
  Receive Date: 20051011
  Receipt Date: 20050930
  Transmission Date: 20060501
  Serious: Yes (Death)
  Sender: FDA-Public Use
  Company Number: FR-JNJFOC-20051000068

PATIENT
  Age: 79 Year
  Sex: Female
  Weight: 54 kg

DRUGS (7)
  1. REMICADE [Suspect]
     Indication: RHEUMATOID ARTHRITIS
     Route: 042
  2. ENBREL [Suspect]
     Indication: RHEUMATOID ARTHRITIS
     Route: 065
  3. HUMIRA [Suspect]
     Indication: RHEUMATOID ARTHRITIS
     Route: 065
  4. ACADIONE [Concomitant]
     Indication: RHEUMATOID ARTHRITIS
     Route: 065
  5. RISPERDAL [Concomitant]
     Route: 048
  6. NUCTALON [Concomitant]
     Route: 048
  7. MOPRAL [Concomitant]
     Route: 048

REACTIONS (2)
  - GENERAL PHYSICAL CONDITION ABNORMAL [None]
  - PANCREATIC CARCINOMA [None]
